FAERS Safety Report 5531858-0 (Version None)
Quarter: 2007Q4

REPORT INFORMATION
  Report Type: 
  Country: None (occurrence: None)
  Receive Date: 20071128
  Receipt Date: 20071128
  Transmission Date: 20080405
  Serious: No
  Sender: FDA-Public Use
  Company Number: None

PATIENT
  Age: 42 Year
  Sex: Male

DRUGS (1)
  1. ALBUTEROL [Suspect]
     Indication: ASTHMA
     Dosage: 2 PUFF(S)  PRN  INHAL
     Route: 055
     Dates: start: 20070531, end: 20071029

REACTIONS (1)
  - TREMOR [None]
